FAERS Safety Report 8066534-6 (Version None)
Quarter: 2012Q1

REPORT INFORMATION
  Report Type: 
  Country: None (occurrence: None)
  Receive Date: 20120124
  Receipt Date: 20120116
  Transmission Date: 20120608
  Serious: Yes (Other)
  Sender: FDA-Public Use
  Company Number: PHHY2012CA005231

PATIENT

DRUGS (2)
  1. ALISKIREN [Suspect]
  2. ANGIOTENSIN CONVERTING ENZYME BLOCKERS [Concomitant]

REACTIONS (2)
  - SUBARACHNOID HAEMORRHAGE [None]
  - GLYCOSYLATED HAEMOGLOBIN INCREASED [None]
